FAERS Safety Report 7698617-4 (Version None)
Quarter: 2011Q3

REPORT INFORMATION
  Report Type: 
  Country: None (occurrence: None)
  Receive Date: 20110818
  Receipt Date: 20110818
  Transmission Date: 20111222
  Serious: Yes (Other)
  Sender: FDA-Public Use
  Company Number: None

PATIENT
  Age: 60 Year
  Sex: Male

DRUGS (1)
  1. REVLIMID [Suspect]
     Indication: MULTIPLE MYELOMA
     Dosage: REVLIMID 10MG DAILY X 21D/28D ORAL
     Route: 048
     Dates: start: 20110725, end: 20110804

REACTIONS (8)
  - PARAESTHESIA [None]
  - NAUSEA [None]
  - PALLOR [None]
  - MUSCLE SPASMS [None]
  - HYPOAESTHESIA [None]
  - FATIGUE [None]
  - TREMOR [None]
  - HYPERGLYCAEMIA [None]
